FAERS Safety Report 9089955 (Version 1)
Quarter: 2013Q1

REPORT INFORMATION
  Report Type: Report from Study
  Country: US (occurrence: US)
  Receive Date: 20130131
  Receipt Date: 20130131
  Transmission Date: 20140127
  Serious: No
  Sender: FDA-Public Use
  Company Number: US-ABBOTT-12P-163-0994821-00

PATIENT
  Sex: Female

DRUGS (2)
  1. HUMIRA [Suspect]
     Indication: ANKYLOSING SPONDYLITIS
     Route: 058
     Dates: start: 201204
  2. HUMIRA [Suspect]
     Route: 058

REACTIONS (7)
  - Vision blurred [Recovering/Resolving]
  - Eye pain [Recovering/Resolving]
  - Back pain [Recovering/Resolving]
  - Musculoskeletal stiffness [Recovering/Resolving]
  - Injection site erythema [Recovering/Resolving]
  - Injection site pruritus [Not Recovered/Not Resolved]
  - Injection site nodule [Recovering/Resolving]
